FAERS Safety Report 18886065 (Version 1)
Quarter: 2021Q1

REPORT INFORMATION
  Report Type: Spontaneous
  Country: US (occurrence: US)
  Receive Date: 20210212
  Receipt Date: 20210212
  Transmission Date: 20210420
  Serious: Yes (Hospitalization)
  Sender: FDA-Public Use
  Company Number: None

PATIENT
  Age: 12 Year
  Sex: Male

DRUGS (7)
  1. ACETYCYSTEINE 20% INH SOL [Concomitant]
     Dates: start: 20201119
  2. FLOVENT HFA [Concomitant]
     Active Substance: FLUTICASONE PROPIONATE
  3. ITRACONAZOLE 100MG [Concomitant]
     Active Substance: ITRACONAZOLE
  4. SODIUM CHLORIDE 7% NEB SOL [Concomitant]
     Dates: start: 20200804
  5. LEVOFLOXACIN 500MG [Concomitant]
     Active Substance: LEVOFLOXACIN
     Dates: start: 20201224
  6. MINOCYCLINE [Concomitant]
     Active Substance: MINOCYCLINE HYDROCHLORIDE
     Dates: start: 20201219
  7. TOBRAMYCIN. [Suspect]
     Active Substance: TOBRAMYCIN
     Indication: BACTERIAL INFECTION
     Route: 048
     Dates: start: 20200830

REACTIONS (3)
  - Pneumonia [None]
  - Bronchiectasis [None]
  - Fungal infection [None]

NARRATIVE: CASE EVENT DATE: 20210128
